FAERS Safety Report 5142437-1 (Version None)
Quarter: 2006Q4

REPORT INFORMATION
  Report Type: 
  Country: None (occurrence: None)
  Receive Date: 20061027
  Receipt Date: 20061024
  Transmission Date: 20070319
  Serious: No
  Sender: FDA-Public Use
  Company Number: TAP2006Q01761

PATIENT
  Sex: Male

DRUGS (1)
  1. PREVACID [Suspect]
     Indication: DRUG USE FOR UNKNOWN INDICATION
     Dosage: 30 MG ORAL
     Route: 048
     Dates: start: 20061001

REACTIONS (1)
  - VISION BLURRED [None]
